FAERS Safety Report 20961708 (Version 1)
Quarter: 2022Q2

REPORT INFORMATION
  Report Type: Spontaneous
  Country: US (occurrence: None)
  Receive Date: 20220614
  Receipt Date: 20220614
  Transmission Date: 20220721
  Serious: No
  Sender: FDA-Public Use
  Company Number: None

PATIENT
  Age: 63 Year
  Sex: Female
  Weight: 60.75 kg

DRUGS (5)
  1. MOLNUPIRAVIR [Suspect]
     Active Substance: MOLNUPIRAVIR
     Indication: COVID-19
     Dosage: OTHER QUANTITY : 4 CAPSULE(S);?FREQUENCY : EVERY 12 HOURS;?
     Route: 048
     Dates: start: 20220517, end: 20220522
  2. VALACYCLOVIR [Concomitant]
     Active Substance: VALACYCLOVIR HYDROCHLORIDE
  3. VITAMIN D NOS [Concomitant]
     Active Substance: VITAMIN D NOS
  4. CALCIUM [Concomitant]
  5. FISH OIL [Concomitant]

REACTIONS (9)
  - Vertigo [None]
  - Vomiting [None]
  - Diarrhoea [None]
  - Nausea [None]
  - Dizziness [None]
  - Fatigue [None]
  - Asthenia [None]
  - Hypophagia [None]
  - Bedridden [None]

NARRATIVE: CASE EVENT DATE: 20220529
